FAERS Safety Report 16414431 (Version 1)
Quarter: 2019Q3

REPORT INFORMATION
  Report Type: Spontaneous
  Country: US (occurrence: US)
  Receive Date: 20190610
  Receipt Date: 20190610
  Transmission Date: 20191004
  Serious: No
  Sender: FDA-Public Use
  Company Number: None

PATIENT
  Age: 61 Year
  Sex: Female
  Weight: 63 kg

DRUGS (9)
  1. ESTRADIOL. [Suspect]
     Active Substance: ESTRADIOL
     Indication: HORMONE REPLACEMENT THERAPY
     Dosage: ?          QUANTITY:1 TABLET(S);?
     Dates: end: 20190520
  2. PROGESTERONE. [Concomitant]
     Active Substance: PROGESTERONE
  3. E [Concomitant]
  4. GABAPENTIN. [Concomitant]
     Active Substance: GABAPENTIN
  5. KETOROLAC [Concomitant]
     Active Substance: KETOROLAC TROMETHAMINE
  6. AGGRENOX [Concomitant]
     Active Substance: ASPIRIN\DIPYRIDAMOLE
  7. VITAMIN C [Concomitant]
     Active Substance: ASCORBIC ACID
  8. VITAMIN D3 [Concomitant]
     Active Substance: CHOLECALCIFEROL
  9. TUMERIC [Concomitant]
     Active Substance: HERBALS\TURMERIC

REACTIONS (2)
  - Rash pruritic [None]
  - Product formulation issue [None]

NARRATIVE: CASE EVENT DATE: 20181201
